FAERS Safety Report 9782564 (Version 2)
Quarter: 2014Q3

REPORT INFORMATION
  Report Type: Spontaneous
  Country: JP (occurrence: JP)
  Receive Date: 20131226
  Receipt Date: 20140702
  Transmission Date: 20150326
  Serious: Yes (Hospitalization)
  Sender: FDA-Public Use
  Company Number: PHHY2013JP151255

PATIENT
  Age: 80 Year
  Sex: Female
  Weight: 46 kg

DRUGS (4)
  1. EXELON PATCH [Suspect]
     Active Substance: RIVASTIGMINE
     Dosage: 9 MG, DAILY
     Route: 062
     Dates: start: 20130530, end: 20130618
  2. RISPERIDONE. [Concomitant]
     Active Substance: RISPERIDONE
     Dosage: 1 MG
  3. RISPERIDONE. [Concomitant]
     Active Substance: RISPERIDONE
     Dosage: 0.5 MG
     Route: 048
     Dates: start: 20130703, end: 20130724
  4. EXELON PATCH [Suspect]
     Active Substance: RIVASTIGMINE
     Indication: DEMENTIA ALZHEIMER^S TYPE
     Dosage: 4.5 MG, DAILY
     Route: 062
     Dates: start: 20130501, end: 20130529

REACTIONS (10)
  - Delusion [Unknown]
  - Insomnia [Recovering/Resolving]
  - Agitation [Recovering/Resolving]
  - Irritability [Recovering/Resolving]
  - Anger [Recovering/Resolving]
  - Mental disorder [Recovering/Resolving]
  - Behavioural and psychiatric symptoms of dementia [Recovering/Resolving]
  - Aggression [Recovering/Resolving]
  - Condition aggravated [Recovering/Resolving]
  - Anxiety [Unknown]

NARRATIVE: CASE EVENT DATE: 20130615
